FAERS Safety Report 7626314-X (Version None)
Quarter: 2011Q3

REPORT INFORMATION
  Report Type: 
  Country: None (occurrence: None)
  Receive Date: 20110721
  Receipt Date: 20110709
  Transmission Date: 20111222
  Serious: Yes (Hospitalization, Other)
  Sender: FDA-Public Use
  Company Number: US-AMGEN-USASP2011035134

PATIENT
  Age: 64 Year
  Sex: Female

DRUGS (4)
  1. ENBREL [Suspect]
     Indication: RHEUMATOID ARTHRITIS
     Dosage: UNK
     Dates: start: 20060101, end: 20070101
  2. ORENCIA [Concomitant]
     Dosage: UNK
  3. RITUXAN [Concomitant]
     Dosage: UNK
  4. PREDNISONE [Concomitant]
     Dosage: UNK

REACTIONS (7)
  - GASTROINTESTINAL ULCER HAEMORRHAGE [None]
  - RHEUMATOID ARTHRITIS [None]
  - VISION BLURRED [None]
  - ALLERGIC RESPIRATORY DISEASE [None]
  - DEAFNESS TRAUMATIC [None]
  - SPINAL COLUMN STENOSIS [None]
  - DRUG INEFFECTIVE [None]
